FAERS Safety Report 4707908-8 (Version None)
Quarter: 2005Q3

REPORT INFORMATION
  Report Type: 
  Country: None (occurrence: None)
  Receive Date: 20050705
  Receipt Date: 20050705
  Transmission Date: 20060218
  Serious: Yes (Life-Threatening)
  Sender: FDA-Public Use
  Company Number: None

PATIENT
  Age: 27 Year
  Sex: Female
  Weight: 70.3075 kg

DRUGS (1)
  1. CYMBALTA [Suspect]
     Indication: COMPLEX REGIONAL PAIN SYNDROME
     Dosage: 30MG 2X'S A DAY ORAL
     Route: 048
     Dates: start: 20050310, end: 20050605

REACTIONS (3)
  - FEAR [None]
  - SUICIDAL IDEATION [None]
  - THINKING ABNORMAL [None]
